FAERS Safety Report 12444043 (Version 2)
Quarter: 2016Q3

REPORT INFORMATION
  Report Type: Spontaneous
  Country: US (occurrence: US)
  Receive Date: 20160607
  Receipt Date: 20160912
  Transmission Date: 20161109
  Serious: No
  Sender: FDA-Public Use
  Company Number: US-SA-2016SA080208

PATIENT
  Age: 69 Year
  Sex: Male
  Weight: 99.79 kg

DRUGS (2)
  1. TOUJEO [Suspect]
     Active Substance: INSULIN GLARGINE
     Indication: TYPE 2 DIABETES MELLITUS
     Dosage: DOSE:36 UNIT(S)
     Route: 065
     Dates: start: 20160325
  2. SOLOSTAR [Concomitant]
     Active Substance: DEVICE
     Dates: start: 20160325

REACTIONS (1)
  - Tremor [Unknown]
